FAERS Safety Report 19189283 (Version 2)
Quarter: 2021Q2

REPORT INFORMATION
  Report Type: Spontaneous
  Country: UA (occurrence: UA)
  Receive Date: 20210428
  Receipt Date: 20210603
  Transmission Date: 20210717
  Serious: Yes (Other)
  Sender: FDA-Public Use
  Company Number: UA-ASTRAZENECA-2021A354100

PATIENT
  Age: 63 Year
  Sex: Male
  Weight: 98 kg

DRUGS (9)
  1. CARDIOMAGNYL [Concomitant]
     Active Substance: ASPIRIN\MAGNESIUM HYDROXIDE
     Dosage: 75.0MG UNKNOWN
  2. OLTAR [Concomitant]
     Dosage: 4MG UNCOMPENSATED
  3. OLTAR [Concomitant]
     Dosage: 4MG UNCOMPENSATED UNKNOWN
  4. ROSUVASTATIN. [Concomitant]
     Active Substance: ROSUVASTATIN
     Dosage: 20.0MG UNKNOWN
  5. FORXIGA [Suspect]
     Active Substance: DAPAGLIFLOZIN
     Indication: TYPE 2 DIABETES MELLITUS
     Route: 048
     Dates: start: 20210118, end: 20210122
  6. OLTAR [Concomitant]
     Dosage: 1.0MG UNKNOWN
  7. GLIMEPIRIDE. [Concomitant]
     Active Substance: GLIMEPIRIDE
     Dosage: 4.0MG UNKNOWN
  8. SIOFOR [Concomitant]
     Active Substance: METFORMIN HYDROCHLORIDE
     Dosage: 1000,2TIMES PER DAY
  9. TELMISARTAN. [Concomitant]
     Active Substance: TELMISARTAN
     Dosage: 40.0MG UNKNOWN

REACTIONS (6)
  - General physical health deterioration [Recovering/Resolving]
  - Aspartate aminotransferase increased [Recovered/Resolved]
  - Asthenia [Recovering/Resolving]
  - Condition aggravated [Recovering/Resolving]
  - Alanine aminotransferase increased [Recovered/Resolved]
  - Blood creatinine increased [Recovering/Resolving]

NARRATIVE: CASE EVENT DATE: 20210121
